FAERS Safety Report 8540219 (Version 10)
Quarter: 2012Q4

REPORT INFORMATION
  Report Type: Report from Study
  Country: US (occurrence: US)
  Receive Date: 20120424
  Receipt Date: 20120914
  Transmission Date: 20130627
  Serious: Yes (Other)
  Sender: FDA-Public Use
  Company Number: US-009507513-2012SP020784

PATIENT
  Age: 51 Year
  Sex: Male
  Weight: 90.6 kg

DRUGS (16)
  1. RIBAVIRIN [Suspect]
     Indication: HEPATITIS C
     Dosage: 600 mg, BID
     Route: 048
     Dates: start: 20111229, end: 20120118
  2. RIBAVIRIN [Suspect]
     Dosage: 600 mg, BID
     Route: 048
     Dates: start: 20110119, end: 20120313
  3. PEGINTERFERON ALFA-2A [Suspect]
     Indication: HEPATITIS C
     Dosage: 180 Microgram, qw
     Route: 058
     Dates: start: 20120119, end: 20120309
  4. GS-5885 [Suspect]
     Indication: HEPATITIS C
     Dosage: 3 DF, QD
     Route: 048
     Dates: start: 20111229, end: 20120118
  5. GS-5885 [Suspect]
     Dosage: 3 DF, QD
     Route: 048
     Dates: start: 20120119, end: 20120313
  6. INVESTIGATIONAL DRUG [Suspect]
     Indication: HEPATITIS C
     Dosage: 2 DF, QD
     Route: 048
     Dates: start: 20111229, end: 20120118
  7. INVESTIGATIONAL DRUG [Suspect]
     Dosage: 2 DF, QD
     Route: 048
     Dates: start: 20120119, end: 20120313
  8. PLACEBO [Suspect]
     Indication: HEPATITIS C
     Dosage: 1 DF, BID
     Route: 048
     Dates: start: 20111229, end: 20120118
  9. METOPROLOL [Concomitant]
     Dosage: UNK UNK, Unknown
     Route: 065
     Dates: start: 2004
  10. ASPIRIN [Concomitant]
     Dosage: UNK UNK, Unknown
     Route: 065
     Dates: start: 2004, end: 20120329
  11. SULINDAC [Concomitant]
     Dosage: UNK UNK, Unknown
     Route: 065
     Dates: start: 20111218, end: 20120327
  12. CELEXA [Concomitant]
     Dosage: UNK UNK, Unknown
     Route: 065
     Dates: start: 20120118
  13. TYLENOL [Concomitant]
     Dosage: UNK UNK, Unknown
     Route: 065
     Dates: start: 20120118
  14. Z-PAK [Concomitant]
     Dosage: UNK UNK, Unknown
     Route: 065
     Dates: start: 20120221, end: 20120225
  15. CODEINE [Concomitant]
     Dosage: UPDATE:(17APR2012)
     Dates: start: 20120119, end: 20120218
  16. RANITIDINE [Concomitant]
     Dosage: UPDATE:(17APR2012)
     Route: 065

REACTIONS (2)
  - Sensorimotor disorder [Not Recovered/Not Resolved]
  - Rash [Recovered/Resolved]
